FAERS Safety Report 8238349-7 (Version None)
Quarter: 2012Q1

REPORT INFORMATION
  Report Type: 
  Country: None (occurrence: None)
  Receive Date: 20120327
  Receipt Date: 20120319
  Transmission Date: 20120608
  Serious: Yes (Other)
  Sender: FDA-Public Use
  Company Number: DE-BAYER-2012-024352

PATIENT
  Age: 25 Year
  Sex: Female
  Weight: 57 kg

DRUGS (2)
  1. VENLAFAXINE [Concomitant]
     Indication: DEPRESSION
     Dosage: DAILY DOSE 300 MG
  2. MIRENA [Suspect]
     Indication: CONTRACEPTION
     Dosage: 20 MCG/24HR, CONT
     Route: 015
     Dates: start: 20111020, end: 20111122

REACTIONS (4)
  - SUICIDAL IDEATION [None]
  - ANXIETY [None]
  - DEPRESSION SUICIDAL [None]
  - MOOD SWINGS [None]
